FAERS Safety Report 5002737-2 (Version None)
Quarter: 2006Q2

REPORT INFORMATION
  Report Type: 
  Country: None (occurrence: None)
  Receive Date: 20060512
  Receipt Date: 20060506
  Transmission Date: 20061013
  Serious: Yes (Other)
  Sender: FDA-Public Use
  Company Number: 2006060842

PATIENT
  Sex: Female
  Weight: 68.0396 kg

DRUGS (1)
  1. NEURONTIN [Suspect]
     Indication: CONVULSION
     Dates: start: 20010101

REACTIONS (8)
  - CEREBRAL DISORDER [None]
  - CONVERSION DISORDER [None]
  - DIZZINESS [None]
  - DRUG INEFFECTIVE [None]
  - DYSKINESIA [None]
  - MUSCLE SPASMS [None]
  - NAUSEA [None]
  - PAIN [None]
